FAERS Safety Report 5646089-3 (Version None)
Quarter: 2008Q1

REPORT INFORMATION
  Report Type: 
  Country: None (occurrence: None)
  Receive Date: 20080229
  Receipt Date: 20080218
  Transmission Date: 20080703
  Serious: Yes (Other)
  Sender: FDA-Public Use
  Company Number: US-PFIZER INC-2008016684

PATIENT
  Sex: Female
  Weight: 90.909 kg

DRUGS (11)
  1. CHANTIX [Suspect]
     Indication: SMOKING CESSATION THERAPY
     Dates: start: 20071201, end: 20071201
  2. MIRAPEX [Concomitant]
  3. ZANAFLEX [Concomitant]
  4. COZAAR [Concomitant]
  5. LEVOTHYROXINE SODIUM [Concomitant]
  6. GLYBURIDE [Concomitant]
  7. CELEXA [Concomitant]
  8. INDERAL [Concomitant]
  9. HYDROXYZINE [Concomitant]
  10. XANAX [Concomitant]
  11. VICODIN [Concomitant]

REACTIONS (2)
  - INTERNATIONAL NORMALISED RATIO INCREASED [None]
  - THROMBOSIS [None]
